FAERS Safety Report 5645110-6 (Version None)
Quarter: 2008Q1

REPORT INFORMATION
  Report Type: 
  Country: None (occurrence: None)
  Receive Date: 20080229
  Receipt Date: 20080219
  Transmission Date: 20080703
  Serious: Yes (Other)
  Sender: FDA-Public Use
  Company Number: JP-ROCHE-545759

PATIENT
  Age: 9 Year
  Sex: Male
  Weight: 24 kg

DRUGS (5)
  1. TAMIFLU [Suspect]
     Route: 048
     Dates: start: 20080128, end: 20080128
  2. ASVERIN [Concomitant]
     Route: 048
     Dates: start: 20080128, end: 20080201
  3. PERIACTIN [Concomitant]
     Route: 048
     Dates: start: 20080128, end: 20080201
  4. CALONAL [Concomitant]
     Dosage: TAKEN AS NEEDED
     Route: 048
     Dates: start: 20080128, end: 20080201
  5. TOMIRON [Concomitant]
     Dosage: FINE GRANULES
     Route: 048
     Dates: start: 20080129, end: 20080201

REACTIONS (1)
  - DELIRIUM [None]
